FAERS Safety Report 18359586 (Version 1)
Quarter: 2020Q4

REPORT INFORMATION
  Report Type: Spontaneous
  Country: CA (occurrence: CA)
  Receive Date: 20201008
  Receipt Date: 20201008
  Transmission Date: 20210114
  Serious: Yes (Hospitalization)
  Sender: FDA-Public Use
  Company Number: CA-ACCORD-204186

PATIENT
  Age: 74 Year
  Sex: Female

DRUGS (4)
  1. SERTRALINE [Concomitant]
     Active Substance: SERTRALINE HYDROCHLORIDE
  2. CAPECITABINE. [Suspect]
     Active Substance: CAPECITABINE
     Indication: BREAST CANCER METASTATIC
     Route: 048
  3. CLONAZEPAM. [Concomitant]
     Active Substance: CLONAZEPAM
  4. PHENYTOIN. [Interacting]
     Active Substance: PHENYTOIN
     Indication: SEIZURE
     Dosage: 1 EVERY 1 DAYS
     Route: 048

REACTIONS (7)
  - Confusional state [Recovering/Resolving]
  - Toxicity to various agents [Unknown]
  - Asthenia [Recovering/Resolving]
  - Somnolence [Recovering/Resolving]
  - Fall [Unknown]
  - Drug interaction [Unknown]
  - Tremor [Recovering/Resolving]
